FAERS Safety Report 5013476-6 (Version None)
Quarter: 2006Q2

REPORT INFORMATION
  Report Type: 
  Country: None (occurrence: None)
  Receive Date: 20060525
  Receipt Date: 20060525
  Transmission Date: 20061013
  Serious: Yes (Disabling)
  Sender: FDA-Public Use
  Company Number: None

PATIENT
  Age: 37 Year
  Sex: Female
  Weight: 85.4 kg

DRUGS (1)
  1. CHLORPROMAZINE [Suspect]
     Dates: start: 20051006, end: 20051006

REACTIONS (1)
  - HYPERTHERMIA [None]
